FAERS Safety Report 21664912 (Version 1)
Quarter: 2022Q4

REPORT INFORMATION
  Report Type: Report from Study
  Country: US (occurrence: US)
  Receive Date: 20221130
  Receipt Date: 20221130
  Transmission Date: 20230113
  Serious: Yes (Hospitalization)
  Sender: FDA-Public Use
  Company Number: US-SEATTLE GENETICS-2022SGN10257

PATIENT
  Age: 68 Year
  Sex: Female

DRUGS (1)
  1. TUCATINIB [Suspect]
     Active Substance: TUCATINIB
     Indication: Breast cancer female
     Dosage: UNK
     Route: 065

REACTIONS (12)
  - COVID-19 [Recovering/Resolving]
  - Lower respiratory tract infection [Recovering/Resolving]
  - Cough [Not Recovered/Not Resolved]
  - Dehydration [Recovering/Resolving]
  - Inappropriate schedule of product administration [Unknown]
  - Asthenia [Recovering/Resolving]
  - Platelet count abnormal [Unknown]
  - Product dose omission issue [Unknown]
  - Decreased appetite [Unknown]
  - Escherichia infection [Unknown]
  - Sleep disorder [Unknown]
  - Memory impairment [Unknown]

NARRATIVE: CASE EVENT DATE: 20221013
